FAERS Safety Report 9437403 (Version 2)
Quarter: 2013Q3

REPORT INFORMATION
  Report Type: Spontaneous
  Country: DE (occurrence: DE)
  Receive Date: 20130802
  Receipt Date: 20130830
  Transmission Date: 20140515
  Serious: Yes (Other)
  Sender: FDA-Public Use
  Company Number: DE-AMGEN-DEUSP2013041858

PATIENT
  Age: 63 Year
  Sex: Male
  Weight: 81 kg

DRUGS (2)
  1. XGEVA [Suspect]
     Indication: PROPHYLAXIS
     Dosage: 120 MG, UNK,
     Route: 065
     Dates: start: 20130514, end: 20130610
  2. XGEVA [Suspect]
     Indication: PROSTATE CANCER

REACTIONS (3)
  - Osteonecrosis of jaw [Unknown]
  - Toothache [Recovering/Resolving]
  - Tooth disorder [Unknown]
